FAERS Safety Report 18024756 (Version 1)
Quarter: 2020Q3

REPORT INFORMATION
  Report Type: Spontaneous
  Country: US (occurrence: US)
  Receive Date: 20200714
  Receipt Date: 20200714
  Transmission Date: 20201103
  Serious: Yes (Hospitalization)
  Sender: FDA-Public Use
  Company Number: None

PATIENT
  Age: 74 Year
  Sex: Male

DRUGS (2)
  1. DAPTOMYCIN (DAPTOMYCIN 500MG/VIL INJ) [Suspect]
     Active Substance: DAPTOMYCIN
     Indication: OSTEOMYELITIS
     Route: 042
     Dates: start: 20190810, end: 20191008
  2. CEFEPIME (CEFEPIME HCL 2GM/BAG INJ) [Suspect]
     Active Substance: CEFEPIME HYDROCHLORIDE
     Indication: OSTEOMYELITIS
     Route: 042
     Dates: start: 20190810, end: 20191008

REACTIONS (4)
  - Blood urea increased [None]
  - Acute kidney injury [None]
  - Blood creatinine increased [None]
  - Tubulointerstitial nephritis [None]

NARRATIVE: CASE EVENT DATE: 20191008
